FAERS Safety Report 26131280 (Version 1)
Quarter: 2025Q4

REPORT INFORMATION
  Report Type: Spontaneous
  Country: GB (occurrence: GB)
  Receive Date: 20251208
  Receipt Date: 20251208
  Transmission Date: 20260117
  Serious: Yes (Other)
  Sender: Haleon PLC
  Company Number: GB-KENVUE-20251200274

PATIENT
  Sex: Male

DRUGS (2)
  1. NICOTINE [Suspect]
     Active Substance: NICOTINE
     Indication: Smoking cessation therapy
     Dosage: UNK
  2. NICOTINE [Suspect]
     Active Substance: NICOTINE
     Dosage: UNK

REACTIONS (3)
  - Drug dependence [Not Recovered/Not Resolved]
  - Incorrect product administration duration [Unknown]
  - Oropharyngeal pain [Unknown]
